FAERS Safety Report 7213441-4 (Version None)
Quarter: 2011Q1

REPORT INFORMATION
  Report Type: 
  Country: None (occurrence: None)
  Receive Date: 20110106
  Receipt Date: 20101228
  Transmission Date: 20110831
  Serious: Yes (Other)
  Sender: FDA-Public Use
  Company Number: RU-JNJFOC-20101208660

PATIENT
  Sex: Male

DRUGS (4)
  1. TOPAMAX [Suspect]
     Indication: EPILEPSY
     Route: 048
  2. FINLEPSIN [Concomitant]
  3. TOPAMAX [Suspect]
     Route: 048
  4. DEPAKENE [Concomitant]

REACTIONS (1)
  - ALTERED STATE OF CONSCIOUSNESS [None]
